FAERS Safety Report 10009779 (Version 2)
Quarter: 2014Q1

REPORT INFORMATION
  Report Type: Spontaneous
  Country: US (occurrence: US)
  Receive Date: 20140312
  Receipt Date: 20140312
  Transmission Date: 20141002
  Serious: No
  Sender: FDA-Public Use
  Company Number: US-INCYTE CORPORATION-2012IN001905

PATIENT
  Sex: Female

DRUGS (2)
  1. JAKAFI [Suspect]
     Indication: MYELOFIBROSIS
     Dosage: 20 MG, BID
     Route: 048
     Dates: start: 20120803, end: 2012
  2. JAKAFI [Suspect]
     Dosage: NOT SPECIFIED

REACTIONS (3)
  - Haemorrhage [Unknown]
  - Anaemia [Unknown]
  - Drug effect decreased [Unknown]
